FAERS Safety Report 5581436-2 (Version None)
Quarter: 2008Q1

REPORT INFORMATION
  Report Type: 
  Country: None (occurrence: None)
  Receive Date: 20080104
  Receipt Date: 20080102
  Transmission Date: 20080703
  Serious: Yes (Life-Threatening)
  Sender: FDA-Public Use
  Company Number: FR-NOVOPROD-270703

PATIENT
  Age: 9 Year
  Sex: Female

DRUGS (6)
  1. NORDITROPIN [Suspect]
     Indication: HYPOPITUITARISM
     Dosage: 24 UG/KG, QD
     Dates: start: 19991018, end: 20060127
  2. NORDITROPIN [Suspect]
     Dosage: .5 MG, QD
     Dates: start: 20061001
  3. LEVOTHYROX [Suspect]
     Indication: HYPOPITUITARISM
     Dosage: 50 UG, UNK
     Dates: start: 19991018
  4. LEVOTHYROX [Suspect]
     Dosage: 62.5 UG, QD
     Dates: start: 20061001
  5. HYDROCORTICONE [Suspect]
     Indication: HYPOPITUITARISM
     Dosage: 3 MG, QD
     Dates: start: 19991018
  6. HYDROCORTICONE [Suspect]
     Dosage: 5 MG, QD
     Dates: start: 20061001

REACTIONS (1)
  - ASTROCYTOMA [None]
